FAERS Safety Report 5753434-7 (Version None)
Quarter: 2008Q2

REPORT INFORMATION
  Report Type: 
  Country: None (occurrence: None)
  Receive Date: 20080530
  Receipt Date: 20080520
  Transmission Date: 20081010
  Serious: Yes (Other)
  Sender: FDA-Public Use
  Company Number: US-AMGEN-QUU278772

PATIENT
  Sex: Male

DRUGS (3)
  1. ENBREL [Suspect]
     Indication: RHEUMATOID ARTHRITIS
     Route: 058
     Dates: start: 20000801, end: 20080401
  2. PREDNISONE TAB [Concomitant]
  3. PLAQUENIL [Concomitant]

REACTIONS (3)
  - HISTOPLASMOSIS [None]
  - INFECTION [None]
  - PULMONARY EMBOLISM [None]
